FAERS Safety Report 4338318-3 (Version None)
Quarter: 2004Q2

REPORT INFORMATION
  Report Type: 
  Country: None (occurrence: None)
  Receive Date: 20040414
  Receipt Date: 20040301
  Transmission Date: 20050107
  Serious: Yes (Death, Hospitalization)
  Sender: FDA-Public Use
  Company Number: US-BRISTOL-MYERS SQUIBB COMPANY-12521852

PATIENT
  Age: 53 Year
  Sex: Male

DRUGS (8)
  1. CETUXIMAB [Suspect]
     Indication: COLORECTAL CANCER
     Dosage: LOADING DOSE ON 14-OCT-03 928 MG/WKLY INFUSIONS STARTED ON 23-OCT-03.
     Route: 042
     Dates: start: 20040224, end: 20040224
  2. ZOLOFT [Concomitant]
  3. PROCARDIA [Concomitant]
     Dates: start: 20020301
  4. LAXATIVES [Concomitant]
     Dosage: DAILY PRN
  5. PREVACID [Concomitant]
     Dates: start: 20031201
  6. LACTULOSE [Concomitant]
     Dates: start: 20031201
  7. LASIX [Concomitant]
     Dates: start: 20031106
  8. PROTONIX [Concomitant]
     Dates: start: 20040212

REACTIONS (4)
  - COLORECTAL CANCER [None]
  - HEPATIC FAILURE [None]
  - MALIGNANT NEOPLASM PROGRESSION [None]
  - SEPSIS [None]
